FAERS Safety Report 9785059 (Version 1)
Quarter: 2013Q4

REPORT INFORMATION
  Report Type: Spontaneous
  Country: US (occurrence: US)
  Receive Date: 20131227
  Receipt Date: 20131227
  Transmission Date: 20140711
  Serious: No
  Sender: FDA-Public Use
  Company Number: US-B.I. PHARMACEUTICALS,INC./RIDGEFIELD-2013-BI-41587BP

PATIENT
  Age: 79 Year
  Sex: Female
  Weight: 73 kg

DRUGS (6)
  1. COMBIVENT [Suspect]
     Indication: CHRONIC OBSTRUCTIVE PULMONARY DISEASE
     Dosage: STRENGTH: 20 MCG / 100 MCG; DAILY DOSE: 80 MCG/400 MCG
     Route: 055
     Dates: start: 20131204
  2. AMLODIPINE/BENAZEPRIL [Concomitant]
     Indication: HYPERTENSION
     Dosage: STRENGTH: 10/40 MG; DAILY DOSE: 10/40 MG
     Route: 048
  3. SPIRONOLACTONE [Concomitant]
     Indication: HYPERTENSION
     Dosage: 50 MG
     Route: 048
  4. CRESTOR [Concomitant]
     Indication: BLOOD CHOLESTEROL INCREASED
     Dosage: 10 MG
     Route: 048
  5. LEVOTHYROXINE [Concomitant]
     Indication: AUTOIMMUNE THYROIDITIS
     Dosage: 0.88 MCG
     Route: 048
  6. BABY ASPIRIN [Concomitant]
     Dosage: 81 MG
     Route: 048

REACTIONS (6)
  - Cough [Not Recovered/Not Resolved]
  - Rhinorrhoea [Not Recovered/Not Resolved]
  - Arthralgia [Not Recovered/Not Resolved]
  - Musculoskeletal pain [Not Recovered/Not Resolved]
  - Neck pain [Not Recovered/Not Resolved]
  - Muscular weakness [Not Recovered/Not Resolved]
